FAERS Safety Report 5368853-0 (Version None)
Quarter: 2007Q2

REPORT INFORMATION
  Report Type: 
  Country: None (occurrence: None)
  Receive Date: 20070625
  Receipt Date: 20061102
  Transmission Date: 20071010
  Serious: No
  Sender: FDA-Public Use
  Company Number: US-ASTRAZENECA-2006UW21494

PATIENT
  Age: 68 Year
  Sex: Female
  Weight: 66.7 kg

DRUGS (2)
  1. CRESTOR [Suspect]
     Indication: HYPERCHOLESTEROLAEMIA
     Route: 048
  2. COZAAR [Concomitant]
     Route: 048

REACTIONS (1)
  - NIGHT SWEATS [None]
